FAERS Safety Report 9407658 (Version 1)
Quarter: 2013Q3

REPORT INFORMATION
  Report Type: Spontaneous
  Country: US (occurrence: None)
  Receive Date: 20130717
  Receipt Date: 20130717
  Transmission Date: 20140515
  Serious: Yes (Hospitalization, Disabling, Other)
  Sender: FDA-Public Use
  Company Number: None

PATIENT
  Age: 51 Year
  Sex: Female
  Weight: 72.58 kg

DRUGS (1)
  1. XANAX XR [Suspect]
     Indication: POST-TRAUMATIC STRESS DISORDER
     Dosage: 2 MG.-3 TIMES DAILY 3 PILLS DAILY 2MG. 3 TIMES PER DAY BY MOUTH-ORALLY
     Route: 048
     Dates: start: 201001, end: 20130522

REACTIONS (4)
  - Shock [None]
  - Nausea [None]
  - Vomiting [None]
  - Cerebrovascular accident [None]
